FAERS Safety Report 5390079-5 (Version None)
Quarter: 2007Q3

REPORT INFORMATION
  Report Type: 
  Country: None (occurrence: None)
  Receive Date: 20070718
  Receipt Date: 20070711
  Transmission Date: 20080115
  Serious: Yes (Other)
  Sender: FDA-Public Use
  Company Number: A0663332A

PATIENT
  Sex: Male

DRUGS (5)
  1. LAMICTAL [Suspect]
     Indication: BIPOLAR DISORDER
     Dosage: 100MG TWICE PER DAY
     Route: 048
     Dates: start: 20040101
  2. WELLBUTRIN [Suspect]
     Indication: BIPOLAR DISORDER
     Route: 048
  3. LAMOTRIGINE [Suspect]
     Indication: BIPOLAR DISORDER
     Route: 048
     Dates: start: 20070601, end: 20070101
  4. LOTENSIN [Concomitant]
  5. AMPHETAMINE [Concomitant]

REACTIONS (4)
  - DEPRESSION [None]
  - DRUG INEFFECTIVE [None]
  - HYPOMANIA [None]
  - NERVOUSNESS [None]
